FAERS Safety Report 9331550 (Version 1)
Quarter: 2013Q2

REPORT INFORMATION
  Report Type: Spontaneous
  Country: US (occurrence: US)
  Receive Date: 20130605
  Receipt Date: 20130605
  Transmission Date: 20140414
  Serious: No
  Sender: FDA-Public Use
  Company Number: US-PFIZER INC-2013167085

PATIENT
  Age: 56 Year
  Sex: Male

DRUGS (18)
  1. XELJANZ [Suspect]
     Dosage: 5 MG, 2X/DAY
     Route: 048
  2. BUTRANS [Concomitant]
     Dosage: 5 MCG/HR
  3. AMITRIPTYLINE [Concomitant]
     Dosage: 100 MG, UNK
  4. MICARDIS [Concomitant]
     Dosage: 20 MG, UNK
  5. NIASPAN [Concomitant]
     Dosage: 750 MG, UNK
  6. ZOCOR [Concomitant]
     Dosage: 20 MG, UNK
  7. PREDNISONE [Concomitant]
     Dosage: 5 MG, UNK
  8. NEXIUM [Concomitant]
     Dosage: 40 MG, UNK
  9. ZANTAC [Concomitant]
     Dosage: 75 TAB
  10. ALBUTEROL [Concomitant]
     Dosage: 90 UG, UNK
  11. FLONASE [Concomitant]
     Dosage: 0.05 %, UNK
  12. ACYCLOVIR [Concomitant]
     Dosage: 400 MG, UNK
  13. ACETYLSALICYLIC ACID [Concomitant]
     Dosage: 325 MG, UNK
  14. TYLENOL [Concomitant]
     Dosage: 325 MG, UNK
  15. CENTRUM [Concomitant]
     Dosage: UNK
  16. VITAMIN B COMPLEX [Concomitant]
     Dosage: UNK
  17. LYSINE [Concomitant]
     Dosage: 500 MG, UNK
  18. MAGNESIUM [Concomitant]
     Dosage: 300 MG, UNK

REACTIONS (3)
  - Somnolence [Unknown]
  - Eye swelling [Unknown]
  - Insomnia [Unknown]
